FAERS Safety Report 12641043 (Version 1)
Quarter: 2016Q3

REPORT INFORMATION
  Report Type: Spontaneous
  Country: US (occurrence: US)
  Receive Date: 20160810
  Receipt Date: 20160810
  Transmission Date: 20161109
  Serious: No
  Sender: FDA-Public Use
  Company Number: US-ENDO PHARMACEUTICALS INC.-2016-003288

PATIENT
  Sex: Male
  Weight: 93.07 kg

DRUGS (3)
  1. XIAFLEX [Suspect]
     Active Substance: COLLAGENASE CLOSTRIDIUM HISTOLYTICUM
     Dosage: 2ND CYCLE: 2 INJECTIONS: INJECT 0.58MG INTO PENILE PLAQUE UPTO 2 TIMES AT APPROXIMATELY 6 WEEK INTER
     Route: 026
     Dates: start: 20160129
  2. XIAFLEX [Suspect]
     Active Substance: COLLAGENASE CLOSTRIDIUM HISTOLYTICUM
     Indication: PEYRONIE^S DISEASE
     Dosage: 1ST CYCLE: 2 INJECTIONS: INJECT 0.58MG INTO PENILE PLAQUE UPTO 2 TIMES AT APPROXIMATELY 6 WEEK INTER
     Route: 026
  3. XIAFLEX [Suspect]
     Active Substance: COLLAGENASE CLOSTRIDIUM HISTOLYTICUM
     Dosage: 3RD CYCLE: 2 INJECTIONS: INJECT 0.58MG INTO PENILE PLAQUE UPTO 2 TIMES AT APPROXIMATELY 6 WEEK INTER
     Route: 026
     Dates: start: 20160321

REACTIONS (1)
  - Drug ineffective [Unknown]
